FAERS Safety Report 9166230 (Version 3)
Quarter: 2013Q2

REPORT INFORMATION
  Report Type: Report from Study
  Country: BE (occurrence: BE)
  Receive Date: 20130315
  Receipt Date: 20130424
  Transmission Date: 20140414
  Serious: Yes (Hospitalization)
  Sender: FDA-Public Use
  Company Number: BE-ROCHE-1189840

PATIENT
  Age: 61 Year
  Sex: Female
  Weight: 49.7 kg

DRUGS (4)
  1. TRASTUZUMAB EMTANSINE [Suspect]
     Indication: BREAST CANCER METASTATIC
     Dosage: MOST RECENT DOSE PRIOR TO SAE WAS ON 28/JAN/2013. LAST DOSE TAKEN: 181.08 MG
     Route: 042
     Dates: start: 20120702
  2. OMEPRAZOLE [Concomitant]
  3. ZYRTEC [Concomitant]
     Route: 065
     Dates: start: 20120702
  4. NOBITEN [Concomitant]
     Indication: HYPERTENSION
     Route: 065
     Dates: start: 20121016

REACTIONS (1)
  - Urosepsis [Recovered/Resolved]
